FAERS Safety Report 23257608 (Version 1)
Quarter: 2023Q4

REPORT INFORMATION
  Report Type: Spontaneous
  Country: JP (occurrence: JP)
  Receive Date: 20231204
  Receipt Date: 20231204
  Transmission Date: 20240110
  Serious: Yes (Other)
  Sender: FDA-Public Use
  Company Number: JP-CLGN-JP-CLI-2023-043367

PATIENT
  Age: 51 Year
  Sex: Male

DRUGS (1)
  1. HYDROXYUREA [Suspect]
     Active Substance: HYDROXYUREA
     Indication: Acute erythroid leukaemia
     Route: 048

REACTIONS (3)
  - Tumour lysis syndrome [Unknown]
  - Acute kidney injury [Unknown]
  - Off label use [Unknown]
